APPROVED DRUG PRODUCT: IBUPROFEN
Active Ingredient: IBUPROFEN
Strength: 100MG/5ML
Dosage Form/Route: SUSPENSION;ORAL
Application: A211666 | Product #001
Applicant: STRIDES PHARMA GLOBAL PTE LTD
Approved: Feb 22, 2021 | RLD: No | RS: No | Type: OTC